FAERS Safety Report 8763437 (Version 1)
Quarter: 2012Q4

REPORT INFORMATION
  Report Type: 
  Country: US (occurrence: US)
  Receive Date: 20120831
  Receipt Date: 20120831
  Transmission Date: 20130627
  Serious: No
  Sender: FDA-Public Use
  Company Number: US-B.I. PHARMACEUTICALS,INC./RIDGEFIELD-2012-BP-20823BP

PATIENT
  Age: 2 Year
  Sex: Female
  Weight: 11 kg

DRUGS (1)
  1. ZANTAC 150 (RANITIDINE HYDROCHLORIDE) [Suspect]
     Dosage: 600 mg
     Route: 048
     Dates: start: 20120824, end: 20120824

REACTIONS (1)
  - Accidental exposure to product by child [Recovered/Resolved]
